FAERS Safety Report 18507205 (Version 2)
Quarter: 2020Q4

REPORT INFORMATION
  Report Type: Spontaneous
  Country: MX (occurrence: MX)
  Receive Date: 20201116
  Receipt Date: 20201130
  Transmission Date: 20210114
  Serious: Yes (Other)
  Sender: FDA-Public Use
  Company Number: MX-DSJP-DSU-2020-134409

PATIENT
  Sex: Female

DRUGS (2)
  1. ALMETEC [Suspect]
     Active Substance: OLMESARTAN MEDOXOMIL
     Indication: BLOOD PRESSURE INCREASED
     Dosage: 20 MG, 1 TABLET, QD
     Route: 048
  2. ALMETEC [Suspect]
     Active Substance: OLMESARTAN MEDOXOMIL
     Dosage: HALF TABLET AT NIGHT, QD
     Route: 048

REACTIONS (4)
  - Diabetes mellitus [Unknown]
  - Incorrect dose administered [Unknown]
  - Wrong technique in product usage process [Unknown]
  - Blood pressure decreased [Unknown]
